FAERS Safety Report 4620612-X (Version None)
Quarter: 2005Q1

REPORT INFORMATION
  Report Type: 
  Country: None (occurrence: None)
  Receive Date: 20050324
  Receipt Date: 20050317
  Transmission Date: 20050727
  Serious: Yes (Hospitalization, Other)
  Sender: FDA-Public Use
  Company Number: 2005038075

PATIENT
  Age: 60 Year
  Sex: Male
  Weight: 113.3993 kg

DRUGS (9)
  1. LIPITOR [Suspect]
     Indication: ILL-DEFINED DISORDER
     Dosage: 10 MG (10 MG, 1 IN 1 D), ORAL
     Route: 048
     Dates: start: 19970101
  2. METOPROLOL TARTRATE [Concomitant]
  3. FENOFIBRATE [Concomitant]
  4. LISINOPRIL [Concomitant]
  5. METFORMIN HCL [Concomitant]
  6. ACETYL SALICYLIC ACID USP BAT [Concomitant]
  7. NICOTINIC ACID [Concomitant]
  8. ALL OTHER THERAPEUTIC PRODUCTS [Concomitant]
  9. POTASSIUM CHLORIDE [Concomitant]

REACTIONS (4)
  - ANGIOPATHY [None]
  - BLOOD PRESSURE INCREASED [None]
  - GLYCOSYLATED HAEMOGLOBIN INCREASED [None]
  - LIPOMATOSIS [None]
